FAERS Safety Report 12555833 (Version 1)
Quarter: 2016Q3

REPORT INFORMATION
  Report Type: Spontaneous
  Country: US (occurrence: None)
  Receive Date: 20160713
  Receipt Date: 20160713
  Transmission Date: 20161109
  Serious: Yes (Life-Threatening, Disabling, Other)
  Sender: FDA-Public Use
  Company Number: None

PATIENT
  Age: 51 Year
  Sex: Female
  Weight: 68.04 kg

DRUGS (4)
  1. SYNTHROID [Suspect]
     Active Substance: LEVOTHYROXINE SODIUM
  2. LEVOTHYROXIN [Concomitant]
     Active Substance: LEVOTHYROXINE
  3. SIMETHICONE (DIMETHICONE) [Concomitant]
     Active Substance: DIMETHICONE
  4. CALCIUM CARBONATE. [Concomitant]
     Active Substance: CALCIUM CARBONATE

REACTIONS (13)
  - Drug interaction [None]
  - Gastrooesophageal reflux disease [None]
  - Refusal of treatment by patient [None]
  - Anxiety [None]
  - Discomfort [None]
  - Gait disturbance [None]
  - Dysstasia [None]
  - Inguinal hernia [None]
  - Pain in extremity [None]
  - Drug ineffective [None]
  - Drug dose omission [None]
  - Therapy cessation [None]
  - Abnormal behaviour [None]
